FAERS Safety Report 23423953 (Version 1)
Quarter: 2024Q1

REPORT INFORMATION
  Report Type: Report from Study
  Country: DE (occurrence: DE)
  Receive Date: 20240119
  Receipt Date: 20240119
  Transmission Date: 20240410
  Serious: Yes (Hospitalization)
  Sender: FDA-Public Use
  Company Number: DE-ABBVIE-5596997

PATIENT
  Sex: Male

DRUGS (7)
  1. CARBIDOPA\LEVODOPA [Suspect]
     Active Substance: CARBIDOPA\LEVODOPA
     Indication: Parkinson^s disease
     Dosage: MD: 8.1ML; CRD: 3.2ML/H; CRN: 2.0ML/H; ED: 1.0ML
     Route: 050
     Dates: start: 202401
  2. CARBIDOPA\LEVODOPA [Suspect]
     Active Substance: CARBIDOPA\LEVODOPA
     Dosage: MD: 8.1ML; CRD: 3.0ML/H; CRN: 2.0ML/H; ED: 1.0ML
     Route: 050
     Dates: start: 20191111, end: 202401
  3. Darifenacine aristo [Concomitant]
     Indication: Product used for unknown indication
  4. RIVASTIGMINE [Concomitant]
     Active Substance: RIVASTIGMINE
     Indication: Product used for unknown indication
  5. BICALUTAMIDE F [Concomitant]
     Indication: Product used for unknown indication
     Dosage: FORM STRENGTH: 150 MG
  6. VALSARTAN [Concomitant]
     Active Substance: VALSARTAN
     Indication: Product used for unknown indication
  7. QUETIAPINE [Concomitant]
     Active Substance: QUETIAPINE
     Indication: Product used for unknown indication

REACTIONS (8)
  - Muscle rigidity [Recovering/Resolving]
  - Reduced facial expression [Recovering/Resolving]
  - Parkinsonism [Recovering/Resolving]
  - Disorientation [Recovering/Resolving]
  - Device dislocation [Recovered/Resolved]
  - Mobility decreased [Recovering/Resolving]
  - Musculoskeletal stiffness [Recovering/Resolving]
  - Therapeutic product effect variable [Recovering/Resolving]
